FAERS Safety Report 4973543-X (Version None)
Quarter: 2006Q2

REPORT INFORMATION
  Report Type: 
  Country: None (occurrence: None)
  Receive Date: 20060413
  Receipt Date: 20060413
  Transmission Date: 20061013
  Serious: Yes (Life-Threatening)
  Sender: FDA-Public Use
  Company Number: None

PATIENT
  Sex: Male
  Weight: 94 kg

DRUGS (15)
  1. CYCLOPHOSPHAMIDE [Suspect]
     Indication: DEMYELINATING POLYNEUROPATHY
     Dosage: 50MG/KG=4700  IV  QDX4
     Route: 042
     Dates: start: 20060330, end: 20060402
  2. ALLOPURINOL [Concomitant]
  3. LASIX [Concomitant]
  4. DIAMOX [Concomitant]
  5. KYTRIL [Concomitant]
  6. DECADRON [Concomitant]
  7. MESNA [Concomitant]
  8. ELECTROLYTE REPLACEMENT [Concomitant]
  9. ANTIBIOTICS [Concomitant]
  10. IV FLUIDS [Concomitant]
  11. TENORMIN [Concomitant]
  12. PROSCAR [Concomitant]
  13. LIPITOR [Concomitant]
  14. ASPIRIN [Concomitant]
  15. LISINOPRIL [Concomitant]

REACTIONS (4)
  - BONE MARROW FAILURE [None]
  - CONDITION AGGRAVATED [None]
  - PNEUMONIA [None]
  - RESPIRATORY DISTRESS [None]
